FAERS Safety Report 13693934 (Version 1)
Quarter: 2017Q2

REPORT INFORMATION
  Report Type: Spontaneous
  Country: JP (occurrence: JP)
  Receive Date: 20170627
  Receipt Date: 20170627
  Transmission Date: 20170830
  Serious: Yes (Other)
  Sender: FDA-Public Use
  Company Number: JP-PFIZER INC-2017271816

PATIENT
  Age: 51 Year
  Sex: Male
  Weight: 40 kg

DRUGS (4)
  1. REMIFENTANIL [Suspect]
     Active Substance: REMIFENTANIL
     Indication: ANAESTHESIA PROCEDURE
     Dosage: 0.13 MCG/KG/MIN (MAINTAINED AT 0.08 MCG/KG-1/MIN)
  2. DEXMEDETOMIDINE HYDROCHLORIDE. [Suspect]
     Active Substance: DEXMEDETOMIDINE HYDROCHLORIDE
     Indication: ANAESTHESIA PROCEDURE
     Dosage: 3 MCG/KG/HR (ADJUSTED TO 1 MCG/KG/HR)
  3. FENTANYL. [Suspect]
     Active Substance: FENTANYL
     Indication: ANAESTHESIA PROCEDURE
     Dosage: 0.1 MG, UNK
  4. PROPOFOL. [Suspect]
     Active Substance: PROPOFOL
     Indication: ANAESTHESIA
     Dosage: 3.0 MCG/ML (MAINTAINED TCI 2.0 MCG/ML)

REACTIONS (1)
  - Arteriospasm coronary [Recovered/Resolved]
